FAERS Safety Report 9935329 (Version 1)
Quarter: 2014Q1

REPORT INFORMATION
  Report Type: Spontaneous
  Country: US (occurrence: US)
  Receive Date: 20140228
  Receipt Date: 20140228
  Transmission Date: 20141002
  Serious: No
  Sender: FDA-Public Use
  Company Number: US-009507513-1402USA012392

PATIENT
  Age: 13 Year
  Sex: Male

DRUGS (6)
  1. PEGINTRON [Suspect]
     Indication: HEPATITIS C
     Dosage: 1.5 MICROGRAM PER KILOGRAM, QW
  2. PEGINTRON [Suspect]
     Dosage: GOAL 1.5 MCG/KG/WK INCREASED 15-20% EVERY TWO WEEKS
  3. PEGINTRON [Suspect]
     Dosage: GOAL 1.5 MCG/KG/WK AT REDUCED DOSE OF 50%
  4. REBETOL [Suspect]
     Indication: HEPATITIS C
     Dosage: GOAL 15 MG/KG/DAY DIVIDED TWICE DAILY FULL DOSE
     Route: 048
  5. REBETOL [Suspect]
     Dosage: GOAL 15 MG/KGJDAY DIVIDED TWICE DAILY WITH 33% INCREASE EVERY TWO WEEKS
     Route: 048
  6. REBETOL [Suspect]
     Dosage: GOAL 15 MG/KGJDAY DIVIDED TWICE DAILY WITH 33% DOSE
     Route: 048

REACTIONS (2)
  - Depression [Unknown]
  - Anaemia [Unknown]
